FAERS Safety Report 17035951 (Version 2)
Quarter: 2019Q4

REPORT INFORMATION
  Report Type: Spontaneous
  Country: JP (occurrence: JP)
  Receive Date: 20191115
  Receipt Date: 20191126
  Transmission Date: 20200122
  Serious: Yes (Hospitalization)
  Sender: FDA-Public Use
  Company Number: JP-ROCHE-2372532

PATIENT
  Age: 77 Year
  Sex: Female

DRUGS (1)
  1. BONVIVA [Suspect]
     Active Substance: IBANDRONATE SODIUM
     Indication: PRODUCT USED FOR UNKNOWN INDICATION
     Route: 042
     Dates: start: 20190604

REACTIONS (4)
  - Tooth loss [Unknown]
  - Drug hypersensitivity [Unknown]
  - Dysgeusia [Unknown]
  - Spondylolisthesis [Unknown]
